FAERS Safety Report 14577929 (Version 2)
Quarter: 2018Q4

REPORT INFORMATION
  Report Type: Spontaneous
  Country: US (occurrence: US)
  Receive Date: 20180227
  Receipt Date: 20181203
  Transmission Date: 20190204
  Serious: Yes (Other)
  Sender: FDA-Public Use
  Company Number: US-PFIZER INC-2018081111

PATIENT
  Age: 61 Year
  Sex: Female
  Weight: 99.77 kg

DRUGS (1)
  1. XELJANZ XR [Suspect]
     Active Substance: TOFACITINIB CITRATE
     Indication: ARTHRITIS
     Dosage: 11 MG, DAILY
     Route: 048
     Dates: start: 20180219

REACTIONS (5)
  - Stress fracture [Unknown]
  - Nasal congestion [Unknown]
  - Condition aggravated [Unknown]
  - Muscle strain [Unknown]
  - Spinal pain [Unknown]
